FAERS Safety Report 22390303 (Version 1)
Quarter: 2023Q2

REPORT INFORMATION
  Report Type: Spontaneous
  Country: US (occurrence: US)
  Receive Date: 20230531
  Receipt Date: 20230531
  Transmission Date: 20230722
  Serious: Yes (Hospitalization, Other)
  Sender: FDA-Public Use
  Company Number: US-BRISTOL-MYERS SQUIBB COMPANY-2023-075231

PATIENT
  Age: 78 Year
  Sex: Female

DRUGS (1)
  1. REVLIMID [Suspect]
     Active Substance: LENALIDOMIDE
     Indication: Plasma cell myeloma
     Dosage: FREQUENCY: QD X 14 DAYS THEN 7 DAYS OFF
     Route: 048
     Dates: start: 20230426

REACTIONS (5)
  - Blood glucose decreased [Unknown]
  - Insomnia [Unknown]
  - Decreased appetite [Unknown]
  - Immobile [Unknown]
  - Off label use [Unknown]
